FAERS Safety Report 12600017 (Version 3)
Quarter: 2016Q3

REPORT INFORMATION
  Report Type: Report from Study
  Country: US (occurrence: US)
  Receive Date: 20160727
  Receipt Date: 20160822
  Transmission Date: 20161109
  Serious: Yes (Other)
  Sender: FDA-Public Use
  Company Number: US-AMGEN-USASL2016094053

PATIENT
  Age: 66 Year
  Sex: Female

DRUGS (1)
  1. ENBREL [Suspect]
     Active Substance: ETANERCEPT
     Indication: RHEUMATOID ARTHRITIS
     Dosage: 50 MG, QWK
     Route: 065
     Dates: start: 20160708, end: 201607

REACTIONS (9)
  - Rheumatoid arthritis [Unknown]
  - Injection site pruritus [Unknown]
  - Breast pain [Unknown]
  - Drug hypersensitivity [Unknown]
  - Injection site swelling [Not Recovered/Not Resolved]
  - Sleep disorder due to a general medical condition [Unknown]
  - Retracted nipple [Unknown]
  - Injection site bruising [Unknown]
  - Injection site rash [Unknown]

NARRATIVE: CASE EVENT DATE: 201607
